FAERS Safety Report 6223049 (Version 4)
Quarter: 2018Q4

REPORT INFORMATION
  Report Type: Spontaneous
  Country: JP (occurrence: JP)
  Receive Date: 20070125
  Receipt Date: 20181113
  Transmission Date: 20190205
  Serious: Yes (Death, Hospitalization)
  Sender: FDA-Public Use
  Company Number: PHBS2007JP01421

PATIENT
  Age: 31 Year
  Sex: Male

DRUGS (2)
  1. GLIVEC [Suspect]
     Active Substance: IMATINIB MESYLATE
     Indication: CHRONIC MYELOID LEUKAEMIA
     Dosage: 400 MG, QD
     Route: 048
     Dates: start: 200307, end: 200312
  2. GLIVEC [Suspect]
     Active Substance: IMATINIB MESYLATE
     Dosage: 400 MG, QD
     Route: 048
     Dates: start: 200501, end: 200508

REACTIONS (4)
  - Graft versus host disease [Recovered/Resolved]
  - Sepsis [Fatal]
  - Blast crisis in myelogenous leukaemia [Recovered/Resolved]
  - Stem cell transplant [Recovered/Resolved]

NARRATIVE: CASE EVENT DATE: 200312
